FAERS Safety Report 15491843 (Version 3)
Quarter: 2019Q2

REPORT INFORMATION
  Report Type: Spontaneous
  Country: GB (occurrence: GB)
  Receive Date: 20181012
  Receipt Date: 20190404
  Transmission Date: 20190711
  Serious: Yes (Death, Hospitalization, Other)
  Sender: FDA-Public Use
  Company Number: GB-ACCORD-073075

PATIENT
  Age: 64 Year
  Sex: Male

DRUGS (14)
  1. CAPECITABINE. [Suspect]
     Active Substance: CAPECITABINE
     Indication: RECTOSIGMOID CANCER STAGE IV
     Dosage: CYCLIC (SEVEN CYCLES)
  2. IRINOTECAN [Suspect]
     Active Substance: IRINOTECAN
     Indication: RECTOSIGMOID CANCER STAGE IV
  3. OXALIPLATIN. [Suspect]
     Active Substance: OXALIPLATIN
     Indication: ADENOCARCINOMA OF COLON
     Route: 065
  4. FOLINIC ACID [Suspect]
     Active Substance: LEUCOVORIN
     Indication: RECTOSIGMOID CANCER STAGE IV
     Route: 065
  5. AFLIBERCEPT [Suspect]
     Active Substance: AFLIBERCEPT
     Indication: RECTOSIGMOID CANCER STAGE IV
  6. CETUXIMAB. [Concomitant]
     Active Substance: CETUXIMAB
     Indication: RECTOSIGMOID CANCER STAGE IV
  7. LORAZEPAM. [Concomitant]
     Active Substance: LORAZEPAM
     Dates: start: 20150131
  8. LIDOCAINE. [Concomitant]
     Active Substance: LIDOCAINE
     Dates: start: 20150131
  9. CETUXIMAB. [Suspect]
     Active Substance: CETUXIMAB
     Indication: METASTASES TO LIVER
     Route: 065
  10. FOLFIRI [Concomitant]
     Active Substance: FLUOROURACIL\IRINOTECAN\LEUCOVORIN
  11. FLUOROURACIL. [Suspect]
     Active Substance: FLUOROURACIL
     Indication: RECTOSIGMOID CANCER STAGE IV
  12. BEVACIZUMAB. [Suspect]
     Active Substance: BEVACIZUMAB
     Indication: RECTOSIGMOID CANCER STAGE IV
  13. FOLINIC ACID [Suspect]
     Active Substance: LEUCOVORIN
     Indication: RECTOSIGMOID CANCER STAGE IV
  14. OMEPRAZOLE. [Concomitant]
     Active Substance: OMEPRAZOLE
     Dates: start: 20150131

REACTIONS (22)
  - Erythema [Fatal]
  - C-reactive protein increased [Fatal]
  - Proteus infection [Fatal]
  - Renal failure [Fatal]
  - Leukocytosis [Fatal]
  - Clostridial infection [Fatal]
  - Urinary tract infection [Recovered/Resolved]
  - Klebsiella infection [Fatal]
  - Chills [Fatal]
  - Thrombocytopenia [Recovered/Resolved]
  - Hypotension [Fatal]
  - Tachycardia [Fatal]
  - Neutrophilia [Fatal]
  - Candida infection [Fatal]
  - Neoplasm progression [Unknown]
  - Fournier^s gangrene [Fatal]
  - Neutropenia [Recovered/Resolved]
  - Prothrombin level decreased [Fatal]
  - Coagulopathy [Fatal]
  - Blood lactic acid increased [Fatal]
  - Epistaxis [Recovered/Resolved]
  - Inflammation [Fatal]

NARRATIVE: CASE EVENT DATE: 20150125
